FAERS Safety Report 8319180-0 (Version None)
Quarter: 2012Q2

REPORT INFORMATION
  Report Type: 
  Country: None (occurrence: None)
  Receive Date: 20120427
  Receipt Date: 20120420
  Transmission Date: 20120825
  Serious: Yes (Hospitalization)
  Sender: FDA-Public Use
  Company Number: FR-MERCK-1204USA03563

PATIENT
  Age: 65 Year
  Sex: Female

DRUGS (10)
  1. HYZAAR [Suspect]
     Indication: HYPERTENSION
     Route: 048
  2. LEVOTHYROXINE SODIUM [Concomitant]
     Route: 048
  3. AMANTADINE HCL [Suspect]
     Route: 048
  4. ACETAMINOPHEN [Concomitant]
     Route: 048
  5. ESCITALOPRAM [Concomitant]
     Route: 048
     Dates: start: 20110901
  6. FOLIC ACID [Concomitant]
     Route: 048
  7. CLONAZEPAM [Concomitant]
     Route: 048
  8. PRAMIPEXOLE DIHYDROCHLORIDE [Suspect]
     Indication: RESTLESS LEGS SYNDROME
     Route: 048
  9. AZATHIOPRINE [Concomitant]
     Route: 048
     Dates: start: 20040101, end: 20120211
  10. LEVOTHYROXINE SODIUM [Concomitant]
     Indication: HYPOTHYROIDISM
     Route: 048

REACTIONS (1)
  - RHABDOMYOLYSIS [None]
